FAERS Safety Report 24677919 (Version 3)
Quarter: 2024Q4

REPORT INFORMATION
  Report Type: Report from Study
  Country: US (occurrence: US)
  Receive Date: 20241129
  Receipt Date: 20241218
  Transmission Date: 20250115
  Serious: Yes (Hospitalization, Other)
  Sender: UCB
  Company Number: US-UCBSA-2024061039

PATIENT
  Sex: Female

DRUGS (1)
  1. ROZANOLIXIZUMAB [Suspect]
     Active Substance: ROZANOLIXIZUMAB
     Indication: Myasthenia gravis
     Dosage: 560 MILLIGRAM (4ML), WEEKLY (QW) FOR 6 WEEKS
     Route: 058
     Dates: start: 20240918, end: 20241016

REACTIONS (5)
  - Myasthenia gravis crisis [Not Recovered/Not Resolved]
  - Respiratory syncytial virus infection [Unknown]
  - Hospitalisation [Unknown]
  - Asthenia [Unknown]
  - Therapy interrupted [Unknown]

NARRATIVE: CASE EVENT DATE: 20240101
